FAERS Safety Report 18555052 (Version 1)
Quarter: 2020Q4

REPORT INFORMATION
  Report Type: Spontaneous
  Country: US (occurrence: US)
  Receive Date: 20201127
  Receipt Date: 20201127
  Transmission Date: 20210114
  Serious: No
  Sender: FDA-Public Use
  Company Number: US-009507513-2011USA012155

PATIENT
  Sex: Female

DRUGS (1)
  1. ALBUTEROL SULFATE. [Suspect]
     Active Substance: ALBUTEROL SULFATE
     Indication: HYPERSENSITIVITY
     Dosage: 2 DOSAGE FORM, Q6H
     Dates: start: 20201029, end: 20201114

REACTIONS (4)
  - Product dose omission issue [Unknown]
  - Product use in unapproved indication [Unknown]
  - Device malfunction [Unknown]
  - Poor quality device used [Unknown]
